FAERS Safety Report 20525462 (Version 1)
Quarter: 2022Q1

REPORT INFORMATION
  Report Type: Spontaneous
  Country: US (occurrence: US)
  Receive Date: 20220228
  Receipt Date: 20220228
  Transmission Date: 20220423
  Serious: Yes (Hospitalization, Other)
  Sender: FDA-Public Use
  Company Number: US-MLMSERVICE-20220216-3380104-1

PATIENT
  Age: 10 Year
  Sex: Male

DRUGS (13)
  1. TACROLIMUS [Interacting]
     Active Substance: TACROLIMUS
     Indication: Immunosuppressant drug therapy
     Dosage: UNK
     Route: 065
     Dates: start: 2019
  2. TACROLIMUS [Interacting]
     Active Substance: TACROLIMUS
     Dosage: 0.6 MILLIGRAM, BID
     Route: 065
  3. TACROLIMUS [Interacting]
     Active Substance: TACROLIMUS
     Dosage: 1 MILLIGRAM, BID
     Route: 065
  4. TACROLIMUS [Interacting]
     Active Substance: TACROLIMUS
     Dosage: 0.5 MILLIGRAM, BID
     Route: 065
  5. PREDNISONE [Suspect]
     Active Substance: PREDNISONE
     Indication: Immunosuppressant drug therapy
     Dosage: WEAN WAS INITIATED
     Route: 065
  6. PREDNISONE [Suspect]
     Active Substance: PREDNISONE
     Dosage: 10 MILLIGRAM, QD
     Route: 065
  7. PREDNISONE [Suspect]
     Active Substance: PREDNISONE
     Dosage: 3.5 MILLIGRAM, QD
     Route: 065
  8. MYCOPHENOLATE MOFETIL [Suspect]
     Active Substance: MYCOPHENOLATE MOFETIL
     Indication: Immunosuppressant drug therapy
     Dosage: 1000 MILLIGRAM, BID
     Route: 065
     Dates: start: 2019
  9. SULFAMETHOXAZOLE AND TRIMETHOPRIM [Concomitant]
     Active Substance: SULFAMETHOXAZOLE\TRIMETHOPRIM
     Indication: Prophylaxis
     Dosage: UNK
     Route: 065
     Dates: start: 2019
  10. NYSTATIN [Concomitant]
     Active Substance: NYSTATIN
     Indication: Prophylaxis
     Dosage: UNK
     Route: 065
     Dates: start: 2019
  11. VALGANCICLOVIR [Concomitant]
     Active Substance: VALGANCICLOVIR
     Indication: Prophylaxis
     Route: 065
     Dates: start: 2019
  12. FLUCONAZOLE [Interacting]
     Active Substance: FLUCONAZOLE
     Indication: Meningitis cryptococcal
     Dosage: 12 MILLIGRAM/KILOGRAM, QD
     Route: 048
  13. FLUCONAZOLE [Interacting]
     Active Substance: FLUCONAZOLE
     Indication: Cryptococcosis

REACTIONS (8)
  - Immune reconstitution inflammatory syndrome [Recovered/Resolved]
  - IVth nerve paralysis [Unknown]
  - Hemiparesis [Unknown]
  - Cryptococcosis [Recovered/Resolved]
  - Meningitis cryptococcal [Recovered/Resolved]
  - Immunosuppressant drug level increased [Recovered/Resolved]
  - Blood creatinine increased [Unknown]
  - Drug interaction [Unknown]
